FAERS Safety Report 22927565 (Version 4)
Quarter: 2024Q1

REPORT INFORMATION
  Report Type: Spontaneous
  Country: JP (occurrence: JP)
  Receive Date: 20230911
  Receipt Date: 20240202
  Transmission Date: 20240409
  Serious: Yes (Life-Threatening, Other)
  Sender: FDA-Public Use
  Company Number: JP-DSJP-DSJ-2023-136653

PATIENT

DRUGS (18)
  1. BEVACIZUMAB [Suspect]
     Active Substance: BEVACIZUMAB
     Indication: Colon cancer
     Dosage: 250 MILLIGRAM
     Route: 042
     Dates: start: 20230901, end: 20230901
  2. BEVACIZUMAB [Suspect]
     Active Substance: BEVACIZUMAB
     Indication: Colorectal cancer
     Dosage: UNK
     Route: 042
  3. OXALIPLATIN [Suspect]
     Active Substance: OXALIPLATIN
     Indication: Colorectal cancer
     Dosage: 90 MG
     Route: 050
     Dates: start: 20230901, end: 20230901
  4. LEVOLEUCOVORIN CALCIUM [Suspect]
     Active Substance: LEVOLEUCOVORIN CALCIUM
     Indication: Colorectal cancer
     Dosage: 220 MG
     Route: 050
     Dates: start: 20230901, end: 20230901
  5. FLUOROURACIL [Suspect]
     Active Substance: FLUOROURACIL
     Indication: Colorectal cancer
     Dosage: 440 MILLIGRAM
     Route: 050
     Dates: start: 20230901, end: 20230901
  6. FLUOROURACIL [Suspect]
     Active Substance: FLUOROURACIL
     Dosage: 2600 MG
     Route: 050
     Dates: start: 20230901, end: 20230903
  7. PALONOSETRON [Concomitant]
     Active Substance: PALONOSETRON
     Indication: Colorectal cancer
     Dosage: 1 DF
     Route: 065
     Dates: start: 20230901, end: 20230901
  8. DEXAMETHASONE SODIUM PHOSPHATE [Concomitant]
     Active Substance: DEXAMETHASONE PHOSPHATE\DEXAMETHASONE SODIUM PHOSPHATE
     Indication: Colorectal cancer
     Dosage: 6.6 MG
     Route: 065
     Dates: start: 20230901, end: 20230901
  9. FOSNETUPITANT CHLORIDE HYDROCHLORIDE [Concomitant]
     Active Substance: FOSNETUPITANT CHLORIDE HYDROCHLORIDE
     Indication: Colorectal cancer
     Dosage: 1 DF
     Route: 065
     Dates: start: 20230901, end: 20230901
  10. SODIUM CHLORIDE [Concomitant]
     Active Substance: SODIUM CHLORIDE
     Indication: Colorectal cancer
     Dosage: 250 ML
     Route: 065
     Dates: start: 20230901, end: 20230901
  11. ELNEOPA NF NO.1 [Concomitant]
     Dosage: 1500 ML, QD
     Route: 050
     Dates: start: 20230903, end: 20230903
  12. CALCIUM CHLORIDE\POTASSIUM CHLORIDE\SODIUM ACETATE\SODIUM CHLORIDE [Concomitant]
     Active Substance: CALCIUM CHLORIDE\POTASSIUM CHLORIDE\SODIUM ACETATE\SODIUM CHLORIDE
     Dosage: 500 ML, QD
     Route: 050
     Dates: start: 20230903, end: 20230905
  13. DIAZEPAM [Concomitant]
     Active Substance: DIAZEPAM
     Dosage: 10 MG, BID
     Route: 050
     Dates: start: 20230903, end: 20230903
  14. FOSPHENYTOIN SODIUM [Concomitant]
     Active Substance: FOSPHENYTOIN SODIUM
     Dosage: 1125 MG, QD
     Route: 041
     Dates: start: 20230903, end: 20230904
  15. FUROSEMIDE [Concomitant]
     Active Substance: FUROSEMIDE
     Dosage: 20 MG, QD
     Route: 050
     Dates: start: 20230903, end: 20230903
  16. MEYLON [Concomitant]
     Active Substance: SODIUM BICARBONATE
     Dosage: 190 ML, QD
     Route: 050
     Dates: start: 20230903, end: 20230903
  17. Replas 1 [Concomitant]
     Dosage: 500 ML, BID
     Route: 050
     Dates: start: 20230903, end: 20230905
  18. SOLDEM 3A [Concomitant]
     Active Substance: CARBOHYDRATES\POTASSIUM CHLORIDE\SODIUM CHLORIDE\SODIUM LACTATE
     Dosage: 500 ML, BID
     Route: 050
     Dates: start: 20230903, end: 20230905

REACTIONS (2)
  - Encephalopathy [Recovering/Resolving]
  - Altered state of consciousness [Recovering/Resolving]

NARRATIVE: CASE EVENT DATE: 20230903
